FAERS Safety Report 20711423 (Version 1)
Quarter: 2022Q2

REPORT INFORMATION
  Report Type: Spontaneous
  Country: US (occurrence: None)
  Receive Date: 20220414
  Receipt Date: 20220414
  Transmission Date: 20220721
  Serious: Yes (Hospitalization)
  Sender: FDA-Public Use
  Company Number: None

PATIENT
  Sex: Female

DRUGS (29)
  1. NUCALA [Suspect]
     Active Substance: MEPOLIZUMAB
     Indication: Asthma
     Dosage: ?INJECT 1 PEN UNDER THE SKIN (SUBCUTANEOUS INJECTION) EVERY 28 DAYS
     Route: 058
     Dates: start: 20210209
  2. ABILIFY TAB [Concomitant]
  3. ALBUTEROL AER HFA [Concomitant]
  4. ALBUTEROL SULFATE [Concomitant]
     Active Substance: ALBUTEROL SULFATE
  5. AMLODIPINE TAB [Concomitant]
  6. ARIPIPRAZOLE TAB [Concomitant]
  7. ATORVASTATIN [Concomitant]
     Active Substance: ATORVASTATIN
  8. AUSTEDO [Concomitant]
     Active Substance: DEUTETRABENAZINE
  9. BENZONATATE CAP [Concomitant]
  10. BENZTROPINE TAB [Concomitant]
  11. BUTALBITAL AND ACETAMINOPHEN [Concomitant]
     Active Substance: ACETAMINOPHEN\BUTALBITAL
  12. CARVEDILOL [Concomitant]
     Active Substance: CARVEDILOL
  13. CYCLOBENZAPRINE HYDROCHLORIDE [Concomitant]
     Active Substance: CYCLOBENZAPRINE HYDROCHLORIDE
  14. FUROSEMIDE TAB [Concomitant]
  15. IPRATROPIUM/SOL ALBUTER [Concomitant]
  16. KLONOPIN TAB [Concomitant]
  17. LEVOTHYROXIN TAB [Concomitant]
  18. LIDOCAINE PAD [Concomitant]
  19. LISINOPRIL [Concomitant]
     Active Substance: LISINOPRIL
  20. METFORMIN TAB [Concomitant]
  21. METOPROL SUC TAB [Concomitant]
  22. PAROXETINE TAB [Concomitant]
  23. PAXIL TAB [Concomitant]
  24. PREDNISONE [Concomitant]
     Active Substance: PREDNISONE
  25. PRIMIDONE TAB [Concomitant]
  26. SINGULAIR [Concomitant]
     Active Substance: MONTELUKAST SODIUM
  27. SYMBICORT AER [Concomitant]
  28. SYNTHROID TAB [Concomitant]
  29. TIZANIDINE TAB [Concomitant]

REACTIONS (2)
  - Pyrexia [None]
  - Urinary tract infection [None]
